FAERS Safety Report 7008150-0 (Version None)
Quarter: 2010Q3

REPORT INFORMATION
  Report Type: 
  Country: None (occurrence: None)
  Receive Date: 20100922
  Receipt Date: 20100915
  Transmission Date: 20110219
  Serious: Yes (Other)
  Sender: FDA-Public Use
  Company Number: US-US-EMD SERONO, INC.-7015953

PATIENT
  Sex: Female

DRUGS (3)
  1. REBIF [Suspect]
     Indication: MULTIPLE SCLEROSIS
     Route: 058
     Dates: start: 20100818, end: 20100101
  2. REBIF [Suspect]
     Route: 058
     Dates: start: 20100101
  3. INSULIN [Concomitant]
     Indication: DIABETES MELLITUS

REACTIONS (6)
  - ASTHENIA [None]
  - BLOOD GLUCOSE INCREASED [None]
  - DEPRESSION [None]
  - FEELING ABNORMAL [None]
  - INJECTION SITE PAIN [None]
  - PARAESTHESIA [None]
